FAERS Safety Report 6121059-X (Version None)
Quarter: 2009Q1

REPORT INFORMATION
  Report Type: 
  Country: None (occurrence: None)
  Receive Date: 20090317
  Receipt Date: 20090312
  Transmission Date: 20090719
  Serious: Yes (Hospitalization)
  Sender: FDA-Public Use
  Company Number: JP-ASTRAZENECA-2009AP01709

PATIENT
  Age: 69 Year
  Sex: Female
  Weight: 49 kg

DRUGS (5)
  1. IRESSA [Suspect]
     Indication: LUNG ADENOCARCINOMA
     Route: 048
     Dates: start: 20080820, end: 20081002
  2. IRESSA [Suspect]
     Route: 048
     Dates: start: 20081002, end: 20081120
  3. IRESSA [Suspect]
     Route: 048
     Dates: start: 20081201, end: 20081225
  4. AMOBAN [Concomitant]
     Indication: INSOMNIA
     Dosage: AS REQUIRED.
     Route: 048
     Dates: start: 20080820
  5. LOXONIN [Concomitant]
     Indication: BACK PAIN
     Dosage: AS REQUIRED.
     Route: 062
     Dates: start: 20080820

REACTIONS (1)
  - HEPATIC FUNCTION ABNORMAL [None]
